FAERS Safety Report 7961027-6 (Version None)
Quarter: 2011Q4

REPORT INFORMATION
  Report Type: 
  Country: None (occurrence: None)
  Receive Date: 20111207
  Receipt Date: 20111205
  Transmission Date: 20120403
  Serious: Yes (Other)
  Sender: FDA-Public Use
  Company Number: US-PFIZER INC-2011296249

PATIENT
  Sex: Female
  Weight: 55.782 kg

DRUGS (5)
  1. EFFEXOR XR [Suspect]
     Indication: HOT FLUSH
     Dosage: 75 MG, DAILY
     Route: 048
  2. CLARITIN [Concomitant]
     Indication: HYPERSENSITIVITY
     Dosage: 10 MG, DAILY
  3. FLONASE [Concomitant]
     Indication: HYPERSENSITIVITY
     Dosage: UNK
  4. EFFEXOR XR [Suspect]
     Dosage: UNK
     Route: 048
     Dates: end: 20111202
  5. SINGULAIR [Concomitant]
     Dosage: 10 MG, DAILY

REACTIONS (5)
  - DISTURBANCE IN ATTENTION [None]
  - DIARRHOEA [None]
  - PARAESTHESIA [None]
  - HYPERTENSION [None]
  - THINKING ABNORMAL [None]
